FAERS Safety Report 13460649 (Version 1)
Quarter: 2017Q2

REPORT INFORMATION
  Report Type: Spontaneous
  Country: US (occurrence: US)
  Receive Date: 20170419
  Receipt Date: 20170419
  Transmission Date: 20170830
  Serious: Yes (Other)
  Sender: FDA-Public Use
  Company Number: None

PATIENT
  Age: 60 Year
  Sex: Female

DRUGS (1)
  1. HYDROCODONE BITARTRATE AND ACETAMINOPHEN [Suspect]
     Active Substance: ACETAMINOPHEN\HYDROCODONE BITARTRATE
     Indication: PAIN
     Dosage: 1 TABLET THREE TIMES A DAY AND AT BEDTIME BY MOUTH
     Route: 048
     Dates: start: 20141025

REACTIONS (3)
  - Throat irritation [None]
  - Medication residue present [None]
  - Product coating issue [None]

NARRATIVE: CASE EVENT DATE: 20170417
